FAERS Safety Report 23969865 (Version 1)
Quarter: 2024Q2

REPORT INFORMATION
  Report Type: Spontaneous
  Country: NL (occurrence: NL)
  Receive Date: 20240613
  Receipt Date: 20240613
  Transmission Date: 20240716
  Serious: Yes (Hospitalization)
  Sender: FDA-Public Use
  Company Number: None

PATIENT
  Age: 72 Year
  Sex: Male
  Weight: 81.7 kg

DRUGS (9)
  1. LACOSAMIDE [Suspect]
     Active Substance: LACOSAMIDE
     Indication: Epilepsy
     Dosage: 2X PER DAY 1 PIECE
     Dates: start: 20240308
  2. VALPROATE SODIUM [Suspect]
     Active Substance: VALPROATE SODIUM
     Indication: Epilepsy
     Dosage: 2X PER DAY 2 TABLETS
     Dates: start: 20240424, end: 20240514
  3. KEPPRA [Suspect]
     Active Substance: LEVETIRACETAM
     Indication: Epilepsy
     Dosage: 2X PER DAY 3 TABLETS
     Dates: start: 20240308
  4. TIOTROPIUM BROMIDE [Concomitant]
     Active Substance: TIOTROPIUM BROMIDE
     Dosage: INHALATION POWDER, 18 MICROGRAM
  5. Beclometasone, Formoterol [Concomitant]
     Dosage: AEROSOL, 200/6 MICROGRAM PER DOSE
  6. SOTALOL [Concomitant]
     Active Substance: SOTALOL
     Dosage: TABLET, 40 MG (MILLIGRAM)
  7. EDOXABAN [Concomitant]
     Active Substance: EDOXABAN
     Dosage: TABLET, 60 MG (MILLIGRAM)
  8. PAROXETINE [Concomitant]
     Active Substance: PAROXETINE
     Dosage: TABLET, 20 MG (MILLIGRAM)
  9. CLOBAZAM [Concomitant]
     Active Substance: CLOBAZAM
     Dosage: TABLET, 10 MG (MILLIGRAM)

REACTIONS (9)
  - Urinary incontinence [Recovering/Resolving]
  - Erythema [Recovering/Resolving]
  - Disturbance in attention [Recovering/Resolving]
  - Aphasia [Recovering/Resolving]
  - Depressed level of consciousness [Recovering/Resolving]
  - Catatonia [Recovering/Resolving]
  - Somnolence [Recovering/Resolving]
  - Cold sweat [Recovering/Resolving]
  - Fall [Recovering/Resolving]

NARRATIVE: CASE EVENT DATE: 20240501
